FAERS Safety Report 19267729 (Version 1)
Quarter: 2021Q2

REPORT INFORMATION
  Report Type: Spontaneous
  Country: CA (occurrence: CA)
  Receive Date: 20210517
  Receipt Date: 20210517
  Transmission Date: 20210717
  Serious: Yes (Other)
  Sender: FDA-Public Use
  Company Number: CA-PFIZER INC-2020411176

PATIENT
  Age: 36 Year
  Sex: Male
  Weight: 90.72 kg

DRUGS (12)
  1. ZIRABEV [Suspect]
     Active Substance: BEVACIZUMAB-BVZR
     Dosage: 1400 MG, EVERY 3 WEEKS
     Route: 042
     Dates: start: 20210408
  2. ZIRABEV [Suspect]
     Active Substance: BEVACIZUMAB-BVZR
     Indication: GLIOBLASTOMA
     Dosage: 1400 MG, EVERY 3 WEEKS
     Route: 042
     Dates: start: 20201030, end: 20210408
  3. ZIRABEV [Suspect]
     Active Substance: BEVACIZUMAB-BVZR
     Dosage: 1400 MG, EVERY 3 WEEKS
     Route: 042
     Dates: start: 20210408, end: 20210408
  4. ZIRABEV [Suspect]
     Active Substance: BEVACIZUMAB-BVZR
     Dosage: 1400 MG, EVERY 3 WEEKS
     Route: 042
     Dates: start: 20201030
  5. NORMAL SALINE [Concomitant]
     Active Substance: SODIUM CHLORIDE
     Dosage: UNK
     Route: 042
     Dates: start: 20210408, end: 20210408
  6. ZIRABEV [Suspect]
     Active Substance: BEVACIZUMAB-BVZR
     Dosage: 1400 MG, EVERY 3 WEEKS
     Route: 042
     Dates: start: 20201210
  7. ZIRABEV [Suspect]
     Active Substance: BEVACIZUMAB-BVZR
     Dosage: 1400 MG, EVERY 3 WEEKS
     Route: 042
     Dates: start: 20201030
  8. ZIRABEV [Suspect]
     Active Substance: BEVACIZUMAB-BVZR
     Dosage: 1400 MG, EVERY 3 WEEKS
     Route: 042
     Dates: start: 20201231
  9. LOMUSTINE. [Concomitant]
     Active Substance: LOMUSTINE
     Dosage: UNK
  10. ZIRABEV [Suspect]
     Active Substance: BEVACIZUMAB-BVZR
     Dosage: 1400 MG, EVERY 3 WEEKS
     Route: 042
     Dates: start: 20201231
  11. ZIRABEV [Suspect]
     Active Substance: BEVACIZUMAB-BVZR
     Dosage: 1400 MG, EVERY 3 WEEKS
     Route: 042
     Dates: start: 20201210
  12. ZIRABEV [Suspect]
     Active Substance: BEVACIZUMAB-BVZR
     Dosage: 1400 MG, EVERY 3 WEEKS
     Route: 042
     Dates: start: 20210408

REACTIONS (5)
  - Neoplasm progression [Unknown]
  - Fall [Unknown]
  - Epistaxis [Recovered/Resolved]
  - General physical health deterioration [Unknown]
  - Off label use [Unknown]

NARRATIVE: CASE EVENT DATE: 20201030
